FAERS Safety Report 20182040 (Version 2)
Quarter: 2022Q2

REPORT INFORMATION
  Report Type: Spontaneous
  Country: CO (occurrence: CO)
  Receive Date: 20211214
  Receipt Date: 20220427
  Transmission Date: 20220721
  Serious: No
  Sender: FDA-Public Use
  Company Number: CO-PFIZER INC-2021092502

PATIENT
  Age: 5 Year
  Sex: Male

DRUGS (1)
  1. GENOTROPIN [Suspect]
     Active Substance: SOMATROPIN
     Indication: Small for dates baby
     Dosage: 0.6 MG, DAILY
     Route: 058
     Dates: start: 202002

REACTIONS (2)
  - Device use error [Unknown]
  - Device breakage [Unknown]

NARRATIVE: CASE EVENT DATE: 20200301
